FAERS Safety Report 5283280-2 (Version None)
Quarter: 2007Q2

REPORT INFORMATION
  Report Type: 
  Country: None (occurrence: None)
  Receive Date: 20070402
  Receipt Date: 20070328
  Transmission Date: 20071010
  Serious: Yes (Hospitalization)
  Sender: FDA-Public Use
  Company Number: 2007UW06306

PATIENT
  Age: 73 Year
  Sex: Male

DRUGS (2)
  1. SEROQUEL [Suspect]
     Route: 048
  2. LITHIUM CARBONATE [Suspect]

REACTIONS (3)
  - HEPATIC FAILURE [None]
  - LIFE SUPPORT [None]
  - NEUROLEPTIC MALIGNANT SYNDROME [None]
